FAERS Safety Report 20477830 (Version 1)
Quarter: 2022Q1

REPORT INFORMATION
  Report Type: Spontaneous
  Country: JP (occurrence: JP)
  Receive Date: 20220216
  Receipt Date: 20220216
  Transmission Date: 20220423
  Serious: Yes (Hospitalization, Other)
  Sender: FDA-Public Use
  Company Number: JP-MLMSERVICE-20220202-3350447-1

PATIENT
  Age: 74 Year
  Sex: Male

DRUGS (2)
  1. CARBOPLATIN [Suspect]
     Active Substance: CARBOPLATIN
     Indication: Lung adenocarcinoma
     Dosage: WEEKLY CARBOPLATIN (AUC - 2)
  2. PACLITAXEL [Suspect]
     Active Substance: PACLITAXEL
     Indication: Lung adenocarcinoma
     Dosage: WEEKLY PACLITAXEL (35 MG/M2)

REACTIONS (3)
  - Pneumatosis intestinalis [Recovered/Resolved]
  - Constipation [Recovered/Resolved]
  - Febrile neutropenia [Recovered/Resolved]
